FAERS Safety Report 22621688 (Version 1)
Quarter: 2023Q2

REPORT INFORMATION
  Report Type: Spontaneous
  Country: US (occurrence: None)
  Receive Date: 20230616
  Receipt Date: 20230616
  Transmission Date: 20230722
  Serious: No
  Sender: FDA-Public Use
  Company Number: None

PATIENT
  Age: 88 Year
  Sex: Female
  Weight: 68.04 kg

DRUGS (12)
  1. ERLOTINIB [Suspect]
     Active Substance: ERLOTINIB
     Indication: Lung carcinoma cell type unspecified stage 0
     Dosage: FREQUENCY : DAILY;?
     Route: 048
  2. BENADRYL [Concomitant]
     Active Substance: DIPHENHYDRAMINE HYDROCHLORIDE
  3. BIOTIN [Concomitant]
     Active Substance: BIOTIN
  4. CALCIUM+VITAMIN D3 [Concomitant]
  5. IBUPROFEN [Concomitant]
     Active Substance: IBUPROFEN
  6. ELIQUIS [Concomitant]
     Active Substance: APIXABAN
  7. LOSARTAN [Concomitant]
     Active Substance: LOSARTAN
  8. MAXITROL [Concomitant]
     Active Substance: DEXAMETHASONE\NEOMYCIN SULFATE\POLYMYXIN B SULFATE
  9. PREDNISONE [Concomitant]
     Active Substance: PREDNISONE
  10. TAGRISSO [Concomitant]
     Active Substance: OSIMERTINIB
  11. TOBRADEX [Concomitant]
     Active Substance: DEXAMETHASONE\TOBRAMYCIN
  12. TYLENOL [Concomitant]

REACTIONS (2)
  - Lung carcinoma cell type unspecified stage 0 [None]
  - Malignant neoplasm progression [None]
